FAERS Safety Report 21822715 (Version 2)
Quarter: 2023Q1

REPORT INFORMATION
  Report Type: Spontaneous
  Country: US (occurrence: US)
  Receive Date: 20230105
  Receipt Date: 20230111
  Transmission Date: 20230417
  Serious: No
  Sender: FDA-Public Use
  Company Number: US-VIIV HEALTHCARE LIMITED-US2023AMR000334

PATIENT
  Age: 28 Year
  Sex: Male

DRUGS (1)
  1. DOVATO [Suspect]
     Active Substance: DOLUTEGRAVIR SODIUM\LAMIVUDINE
     Indication: HIV infection
     Dosage: UNK UNK, QD, 50-300 MG

REACTIONS (3)
  - Ear pain [Unknown]
  - Bronchitis [Unknown]
  - Wheezing [Unknown]

NARRATIVE: CASE EVENT DATE: 20230102
